FAERS Safety Report 9369290 (Version 1)
Quarter: 2013Q2

REPORT INFORMATION
  Report Type: Spontaneous
  Country: US (occurrence: None)
  Receive Date: 20130625
  Receipt Date: 20130625
  Transmission Date: 20140414
  Serious: Yes (Life-Threatening)
  Sender: FDA-Public Use
  Company Number: None

PATIENT
  Age: 79 Year
  Sex: Female

DRUGS (1)
  1. ACTEMRA [Suspect]
     Indication: RHEUMATOID ARTHRITIS
     Dosage: QMO
     Route: 042
     Dates: start: 20130411, end: 20130511

REACTIONS (1)
  - Anaphylactic reaction [None]
